FAERS Safety Report 9111929 (Version 1)
Quarter: 2013Q1

REPORT INFORMATION
  Report Type: Spontaneous
  Country: US (occurrence: US)
  Receive Date: 20130219
  Receipt Date: 20130219
  Transmission Date: 20140127
  Serious: Yes (Other)
  Sender: FDA-Public Use
  Company Number: US-BRISTOL-MYERS SQUIBB COMPANY-16632721

PATIENT
  Age: 58 Year
  Sex: Female
  Weight: 102.94 kg

DRUGS (6)
  1. ORENCIA [Suspect]
     Indication: RHEUMATOID ARTHRITIS
     Dosage: LAST DATE OF INJECTION:  25MAY2012
     Route: 058
     Dates: start: 20120518
  2. PREDNISONE [Concomitant]
  3. BACTRIM [Concomitant]
  4. ZETIA [Concomitant]
  5. ACETYLSALICYLIC ACID [Concomitant]
  6. ALEVE [Concomitant]

REACTIONS (5)
  - Rheumatoid arthritis [Not Recovered/Not Resolved]
  - Tongue disorder [Not Recovered/Not Resolved]
  - Respiratory tract congestion [Not Recovered/Not Resolved]
  - Dry mouth [Not Recovered/Not Resolved]
  - Pyrexia [Not Recovered/Not Resolved]
